FAERS Safety Report 8426863-0 (Version None)
Quarter: 2012Q2

REPORT INFORMATION
  Report Type: 
  Country: None (occurrence: None)
  Receive Date: 20120611
  Receipt Date: 20120601
  Transmission Date: 20120825
  Serious: Yes (Hospitalization)
  Sender: FDA-Public Use
  Company Number: US-JNJFOC-20120602108

PATIENT
  Sex: Female
  Weight: 58 kg

DRUGS (3)
  1. CORTICOSTEROIDS [Concomitant]
     Route: 042
  2. REMICADE [Suspect]
     Indication: INFLAMMATORY BOWEL DISEASE
     Route: 042
     Dates: start: 20091209
  3. METHOTREXATE [Concomitant]
     Dates: end: 20120112

REACTIONS (1)
  - COLITIS ULCERATIVE [None]
